FAERS Safety Report 4704042-8 (Version None)
Quarter: 2005Q2

REPORT INFORMATION
  Report Type: 
  Country: None (occurrence: None)
  Receive Date: 20050630
  Receipt Date: 20050607
  Transmission Date: 20051028
  Serious: Yes (Hospitalization)
  Sender: FDA-Public Use
  Company Number: IL-ROCHE-406972

PATIENT
  Age: 40 Year
  Sex: Male

DRUGS (6)
  1. MYCOPHENOLATE MOFETIL [Suspect]
     Route: 048
     Dates: start: 20030429
  2. TACROLIMUS [Suspect]
     Route: 048
     Dates: start: 20030430
  3. TACROLIMUS [Suspect]
     Route: 048
  4. ASPIRIN [Suspect]
     Indication: DRUG USE FOR UNKNOWN INDICATION
     Route: 048
     Dates: start: 20030430
  5. ASPIRIN [Suspect]
     Route: 048
  6. PREDNISONE [Concomitant]

REACTIONS (3)
  - CEREBROVASCULAR ACCIDENT [None]
  - DISEASE RECURRENCE [None]
  - TREATMENT NONCOMPLIANCE [None]
